FAERS Safety Report 8122845-7 (Version None)
Quarter: 2012Q1

REPORT INFORMATION
  Report Type: 
  Country: None (occurrence: None)
  Receive Date: 20120208
  Receipt Date: 20120131
  Transmission Date: 20120608
  Serious: Yes (Hospitalization)
  Sender: FDA-Public Use
  Company Number: DE-ABBOTT-12P-062-0900355-00

PATIENT
  Sex: Female

DRUGS (10)
  1. METHOTREXATE [Concomitant]
     Indication: RHEUMATOID ARTHRITIS
  2. HEPARIN [Concomitant]
     Indication: PRODUCT USED FOR UNKNOWN INDICATION
  3. L-THYROX [Concomitant]
     Indication: THYROID DISORDER
  4. ACTONEL [Concomitant]
     Indication: OSTEOPOROSIS
  5. EYE DROPS [Concomitant]
     Indication: PRODUCT USED FOR UNKNOWN INDICATION
  6. HUMIRA [Suspect]
     Indication: RHEUMATOID ARTHRITIS
     Route: 058
     Dates: start: 20060101, end: 20120101
  7. HUMIRA [Suspect]
     Route: 058
     Dates: start: 20120129, end: 20120129
  8. MORPHINE [Concomitant]
     Indication: PRODUCT USED FOR UNKNOWN INDICATION
  9. ATACAND [Concomitant]
     Indication: HYPERTENSION
  10. LACTULOSE [Concomitant]
     Indication: PRODUCT USED FOR UNKNOWN INDICATION

REACTIONS (2)
  - SEPSIS [None]
  - PYREXIA [None]
